FAERS Safety Report 7214261-7 (Version None)
Quarter: 2010Q4

REPORT INFORMATION
  Report Type: 
  Country: None (occurrence: None)
  Receive Date: 20101126
  Receipt Date: 20091027
  Transmission Date: 20110411
  Serious: Yes (Disabling, Other)
  Sender: FDA-Public Use
  Company Number: WAES 0805USA02826

PATIENT
  Age: 65 Year
  Sex: Female

DRUGS (8)
  1. FOSAMAX [Suspect]
     Indication: OSTEOPOROSIS
     Dosage: 10 MG/DAILY/PO
     Route: 048
     Dates: start: 20000802, end: 20010220
  2. FOSAMAX [Suspect]
     Indication: OSTEOPOROSIS
     Dosage: 70 MG/WKY/PO
     Route: 048
     Dates: start: 20010221, end: 20010917
  3. FOSAMAX [Suspect]
     Indication: OSTEOPOROSIS
     Dosage: 35 MG/WKY/PO
     Route: 048
     Dates: start: 20010918, end: 20011201
  4. FOSAMAX [Suspect]
     Indication: OSTEOPOROSIS
     Dosage: PO
     Route: 048
     Dates: start: 20010516, end: 20060119
  5. FOSAMAX PLUS D [Suspect]
     Indication: OSTEOPOROSIS
     Dosage: PO
     Route: 048
     Dates: start: 20060120
  6. FIORICET [Concomitant]
  7. PREMARIN [Concomitant]
  8. TENORMIN [Concomitant]

REACTIONS (13)
  - BLOOD URINE PRESENT [None]
  - CELLULITIS [None]
  - COUGH [None]
  - HYPERINSULINAEMIA [None]
  - HYPERLIPIDAEMIA [None]
  - INFECTION [None]
  - JAW DISORDER [None]
  - LOOSE TOOTH [None]
  - MUSCLE SPASMS [None]
  - OSTEOMYELITIS [None]
  - OSTEONECROSIS [None]
  - TREATMENT NONCOMPLIANCE [None]
  - URINARY TRACT INFECTION [None]
